FAERS Safety Report 25402727 (Version 1)
Quarter: 2025Q2

REPORT INFORMATION
  Report Type: Spontaneous
  Country: CN (occurrence: CN)
  Receive Date: 20250605
  Receipt Date: 20250605
  Transmission Date: 20250716
  Serious: Yes (Other)
  Sender: EISAI
  Company Number: CN-Eisai-EC-2025-190483

PATIENT
  Age: 48 Year
  Sex: Female
  Weight: 56.5 kg

DRUGS (2)
  1. ERIBULIN [Suspect]
     Active Substance: ERIBULIN
     Indication: Breast neoplasm
     Dates: start: 20250218
  2. GEMCITABINE [Suspect]
     Active Substance: GEMCITABINE
     Indication: Breast neoplasm

REACTIONS (2)
  - White blood cell count decreased [Recovered/Resolved]
  - Neutrophil count decreased [Recovered/Resolved]

NARRATIVE: CASE EVENT DATE: 20250224
